FAERS Safety Report 4409596-7 (Version None)
Quarter: 2004Q3

REPORT INFORMATION
  Report Type: 
  Country: None (occurrence: None)
  Receive Date: 20040723
  Receipt Date: 20030826
  Transmission Date: 20050211
  Serious: Yes (Hospitalization, Other)
  Sender: FDA-Public Use
  Company Number: US-JNJFOC-20040604210

PATIENT
  Age: 18 Month
  Sex: Female

DRUGS (1)
  1. EXTRA STRENGTH TYLENOL [Suspect]
     Dosage: 500 MG, 2 IN 1 DAY, ORAL
     Route: 048

REACTIONS (2)
  - MEDICATION ERROR [None]
  - PRESCRIBED OVERDOSE [None]
